FAERS Safety Report 10380585 (Version 1)
Quarter: 2014Q3

REPORT INFORMATION
  Report Type: Spontaneous
  Country: JP (occurrence: JP)
  Receive Date: 20140813
  Receipt Date: 20140813
  Transmission Date: 20150326
  Serious: Yes (Death)
  Sender: FDA-Public Use
  Company Number: PHHY2013JP160724

PATIENT
  Age: 68 Year
  Sex: Male

DRUGS (3)
  1. EXJADE [Suspect]
     Active Substance: DEFERASIROX
     Indication: ACUTE MYELOID LEUKAEMIA
     Dosage: 1000 MG, UNK
  2. CAG [Concomitant]
  3. VIDAZA [Concomitant]
     Active Substance: AZACITIDINE
     Dates: start: 201205

REACTIONS (3)
  - Hypophagia [Unknown]
  - Bronchopulmonary aspergillosis [Fatal]
  - Pyrexia [Unknown]
